FAERS Safety Report 6298059-2 (Version None)
Quarter: 2009Q3

REPORT INFORMATION
  Report Type: 
  Country: None (occurrence: None)
  Receive Date: 20090804
  Receipt Date: 20090804
  Transmission Date: 20100115
  Serious: No
  Sender: FDA-Public Use
  Company Number: None

PATIENT
  Sex: Female
  Weight: 90.7194 kg

DRUGS (1)
  1. CARAFATE [Suspect]
     Indication: ULCER
     Dosage: 2 TEASPOONS, 4 X PER DAY, PO
     Route: 048
     Dates: start: 20090609, end: 20090619

REACTIONS (4)
  - ACNE [None]
  - FACIAL PAIN [None]
  - SWELLING FACE [None]
  - URTICARIA [None]
